APPROVED DRUG PRODUCT: MORPHINE SULFATE
Active Ingredient: MORPHINE SULFATE
Strength: 200MG
Dosage Form/Route: TABLET, EXTENDED RELEASE;ORAL
Application: A205634 | Product #005
Applicant: SUN PHARMACEUTICAL INDUSTRIES INC
Approved: Aug 25, 2016 | RLD: No | RS: No | Type: DISCN